FAERS Safety Report 6192593-1 (Version None)
Quarter: 2009Q2

REPORT INFORMATION
  Report Type: 
  Country: None (occurrence: None)
  Receive Date: 20090513
  Receipt Date: 20090513
  Transmission Date: 20091009
  Serious: Yes (Other)
  Sender: FDA-Public Use
  Company Number: None

PATIENT
  Sex: Female
  Weight: 72.5755 kg

DRUGS (1)
  1. SPIRONOLACTONE [Suspect]
     Indication: HYPERTENSION
     Dosage: 25 MG 1 DAILY ORAL 1999 OR 2000 THRU 1/23/09
     Route: 048
     Dates: end: 20090123

REACTIONS (1)
  - SYSTEMIC LUPUS ERYTHEMATOSUS [None]
